FAERS Safety Report 13649460 (Version 1)
Quarter: 2017Q2

REPORT INFORMATION
  Report Type: Spontaneous
  Country: RO (occurrence: RO)
  Receive Date: 20170614
  Receipt Date: 20170614
  Transmission Date: 20170830
  Serious: Yes (Hospitalization)
  Sender: FDA-Public Use
  Company Number: RO-ROCHE-1947466

PATIENT
  Age: 47 Year
  Sex: Male

DRUGS (3)
  1. ESBRIET [Suspect]
     Active Substance: PIRFENIDONE
     Dosage: 2 CAPSULES 3 TIMES A DAY
     Route: 048
  2. ESBRIET [Suspect]
     Active Substance: PIRFENIDONE
     Dosage: 1 CAPSULES 3 TIMES A DAY
     Route: 048
  3. ESBRIET [Suspect]
     Active Substance: PIRFENIDONE
     Indication: PRODUCT USED FOR UNKNOWN INDICATION
     Route: 048

REACTIONS (7)
  - Tremor [Recovering/Resolving]
  - Palpitations [Recovering/Resolving]
  - Dizziness [Not Recovered/Not Resolved]
  - Oedema peripheral [Recovered/Resolved]
  - Pruritus generalised [Unknown]
  - Diarrhoea [Recovered/Resolved]
  - Dry skin [Unknown]
